FAERS Safety Report 18303222 (Version 1)
Quarter: 2020Q3

REPORT INFORMATION
  Report Type: Spontaneous
  Country: TH (occurrence: TH)
  Receive Date: 20200923
  Receipt Date: 20200923
  Transmission Date: 20201103
  Serious: Yes (Hospitalization, Other)
  Sender: FDA-Public Use
  Company Number: TH-PFIZER INC-2020361993

PATIENT
  Age: 39 Year
  Sex: Male
  Weight: 39.5 kg

DRUGS (13)
  1. LINEZOLID. [Suspect]
     Active Substance: LINEZOLID
     Dosage: 300 MG, 1X/DAY (QD (ONCE DAILY))
     Dates: start: 202002
  2. AMOXCLAV [AMOXICILLIN;CLAVULANIC ACID] [Concomitant]
     Active Substance: AMOXICILLIN\CLAVULANIC ACID
     Indication: TUBERCULOSIS
     Dosage: 1250 MG, DAILY
     Route: 048
     Dates: start: 20190521, end: 20200113
  3. DELAMANID [Suspect]
     Active Substance: DELAMANID
     Dosage: 200 MG, DAILY (QD (ONCE DAILY))
     Route: 048
     Dates: start: 20190715
  4. CLOFAZIMINE [Suspect]
     Active Substance: CLOFAZIMINE
     Dosage: 200 MG, 1X/DAY (QD (ONCE DAILY))
     Route: 048
     Dates: start: 20190709
  5. DELAMANID [Suspect]
     Active Substance: DELAMANID
     Indication: TUBERCULOSIS
     Dosage: 200 MG, 1X/DAY (QD (ONCE DAILY))
     Route: 048
     Dates: start: 20190521, end: 20190603
  6. BEDAQUILINE [Suspect]
     Active Substance: BEDAQUILINE
     Dosage: 400 MG, 1X/DAY (QD (ONCE DAILY))
     Route: 048
     Dates: start: 20190726
  7. IMIPENEM AND CILASTATIN [Concomitant]
     Active Substance: CILASTATIN SODIUM\IMIPENEM
     Indication: TUBERCULOSIS
     Dosage: 2 G, DAILY
     Route: 042
     Dates: start: 20190521, end: 20200113
  8. PAS [AMINOSALICYLATE SODIUM] [Concomitant]
     Indication: TUBERCULOSIS
     Dosage: 8 G, DAILY
     Route: 048
     Dates: start: 20190521, end: 20190805
  9. PZA [Concomitant]
     Active Substance: PYRAZINAMIDE
     Indication: TUBERCULOSIS
     Dosage: 800 MG, DAILY
     Route: 048
     Dates: start: 20190521
  10. LINEZOLID. [Suspect]
     Active Substance: LINEZOLID
     Indication: TUBERCULOSIS
     Dosage: 600 MG, 1X/DAY (QD (ONCE DAILY))
     Dates: start: 20200128
  11. BEDAQUILINE [Suspect]
     Active Substance: BEDAQUILINE
     Indication: TUBERCULOSIS
     Dosage: 400 MG, 1X/DAY (QD (ONCE DAILY))
     Route: 048
     Dates: start: 20190521, end: 20190603
  12. CLOFAZIMINE [Suspect]
     Active Substance: CLOFAZIMINE
     Indication: TUBERCULOSIS
     Dosage: 200 MG, 1X/DAY (QD (ONCE DAILY))
     Route: 048
     Dates: start: 20190521, end: 20190603
  13. VITAMIN B COMPLEX [Concomitant]
     Active Substance: CYANOCOBALAMIN\DEXPANTHENOL\NIACINAMIDE\PYRIDOXINE HYDROCHLORIDE\RIBOFLAVIN 5^-PHOSPHATE SODIUM\THIAMINE HYDROCHLORIDE\VITAMIN B COMPLEX
     Dosage: UNK
     Dates: start: 20190521

REACTIONS (8)
  - Decreased appetite [Recovered/Resolved]
  - Vomiting [Recovered/Resolved]
  - Electrocardiogram QT prolonged [Recovered/Resolved]
  - Hypoalbuminaemia [Unknown]
  - Anaemia [Unknown]
  - Nausea [Recovered/Resolved]
  - Dizziness [Recovered/Resolved]
  - Ischaemia [Unknown]

NARRATIVE: CASE EVENT DATE: 20190526
